APPROVED DRUG PRODUCT: VICODIN HP
Active Ingredient: ACETAMINOPHEN; HYDROCODONE BITARTRATE
Strength: 660MG;10MG
Dosage Form/Route: TABLET;ORAL
Application: A040117 | Product #001
Applicant: ABBVIE INC
Approved: Sep 23, 1996 | RLD: No | RS: No | Type: DISCN